FAERS Safety Report 19649336 (Version 1)
Quarter: 2021Q3

REPORT INFORMATION
  Report Type: Spontaneous
  Country: CN (occurrence: CN)
  Receive Date: 20210803
  Receipt Date: 20210803
  Transmission Date: 20211014
  Serious: Yes (Other)
  Sender: FDA-Public Use
  Company Number: CN-JIANGSU HENGRUI MEDICINE CO., LTD.-2114563

PATIENT
  Age: 54 Year
  Sex: Male

DRUGS (7)
  1. ETOPOSIDE. [Suspect]
     Active Substance: ETOPOSIDE
     Route: 041
  2. CISPLATIN. [Suspect]
     Active Substance: CISPLATIN
     Route: 041
  3. CYCLOPHOSPHAMIDE FOR INJECTION USP, 500 MG, 1 G AND 2 G PER SINGLE?DOS [Suspect]
     Active Substance: CYCLOPHOSPHAMIDE
     Indication: PLASMA CELL MYELOMA
     Route: 041
  4. DOXORUBICIN [Suspect]
     Active Substance: DOXORUBICIN
     Route: 041
  5. BORTEZOMIB. [Suspect]
     Active Substance: BORTEZOMIB
  6. LENALIDOMIDE [Suspect]
     Active Substance: LENALIDOMIDE
     Route: 048
  7. DEXAMETHASONE. [Suspect]
     Active Substance: DEXAMETHASONE
     Route: 041

REACTIONS (7)
  - Intestinal obstruction [Recovering/Resolving]
  - Neutrophil count decreased [Unknown]
  - Constipation [Recovering/Resolving]
  - Abdominal distension [Recovering/Resolving]
  - Platelet count decreased [Unknown]
  - Asthenia [Unknown]
  - Peripheral sensory neuropathy [Unknown]
